FAERS Safety Report 9114629 (Version 1)
Quarter: 2013Q1

REPORT INFORMATION
  Report Type: Spontaneous
  Country: AU (occurrence: AU)
  Receive Date: 20130208
  Receipt Date: 20130208
  Transmission Date: 20140127
  Serious: Yes (Death)
  Sender: FDA-Public Use
  Company Number: AU-B.I. PHARMACEUTICALS,INC./RIDGEFIELD-2013-AU-00099AU

PATIENT
  Age: 87 Year
  Sex: Female

DRUGS (7)
  1. PRADAXA [Suspect]
     Indication: ATRIAL FIBRILLATION
     Dosage: 220 MG
     Dates: start: 20110805, end: 20121018
  2. DIAFORMIN [Concomitant]
  3. DAPATAB [Concomitant]
  4. CARBIMAZOLE [Concomitant]
  5. COVERSYL PLUS [Concomitant]
  6. TEGRETOL [Concomitant]
     Indication: TRIGEMINAL NEURALGIA
  7. LANOXIN PG [Concomitant]

REACTIONS (1)
  - Cardiac arrest [Fatal]
